FAERS Safety Report 11040076 (Version 2)
Quarter: 2015Q2

REPORT INFORMATION
  Report Type: Report from Study
  Country: BR (occurrence: BR)
  Receive Date: 20150416
  Receipt Date: 20150505
  Transmission Date: 20150821
  Serious: No
  Sender: FDA-Public Use
  Company Number: BR-ABBVIE-15K-020-1374363-00

PATIENT
  Sex: Female
  Weight: 61 kg

DRUGS (3)
  1. NOVALGIN [Concomitant]
     Active Substance: METAMIZOLE SODIUM
     Indication: HYPOPHAGIA
     Dosage: LIQUID / DURING ALL DAY
     Route: 042
     Dates: start: 20150406
  2. HUMIRA [Suspect]
     Active Substance: ADALIMUMAB
     Indication: CROHN^S DISEASE
     Dosage: UNSPECIFIED LOADING DOSE
     Route: 058
     Dates: start: 20141222, end: 20141222
  3. HUMIRA [Suspect]
     Active Substance: ADALIMUMAB
     Dosage: MAINTENANCE DOSE
     Route: 058
     Dates: end: 20150316

REACTIONS (3)
  - Sepsis [Not Recovered/Not Resolved]
  - Localised intraabdominal fluid collection [Unknown]
  - Hypophagia [Unknown]
